FAERS Safety Report 25223218 (Version 7)
Quarter: 2025Q3

REPORT INFORMATION
  Report Type: Report from Study
  Country: US (occurrence: US)
  Receive Date: 20250422
  Receipt Date: 20250830
  Transmission Date: 20251021
  Serious: Yes (Hospitalization, Other)
  Sender: TAKEDA
  Company Number: US-TAKEDA-2025TUS037323

PATIENT
  Age: 63 Year
  Sex: Male

DRUGS (6)
  1. TEDUGLUTIDE [Suspect]
     Active Substance: TEDUGLUTIDE
     Indication: Short-bowel syndrome
     Dosage: 0.38 MILLILITER, QD
     Dates: start: 202503
  2. TEDUGLUTIDE [Suspect]
     Active Substance: TEDUGLUTIDE
     Dosage: 0.38 MILLILITER, QOD
  3. TEDUGLUTIDE [Suspect]
     Active Substance: TEDUGLUTIDE
     Dosage: 0.38 MILLILITER, QD
     Dates: end: 20250528
  4. TEDUGLUTIDE [Suspect]
     Active Substance: TEDUGLUTIDE
     Dosage: 0.19 MILLILITER, QOD
     Dates: start: 20250618
  5. TEDUGLUTIDE [Suspect]
     Active Substance: TEDUGLUTIDE
     Dosage: 0.38 MILLILITER, QD
     Dates: end: 20250811
  6. METOPROLOL [Suspect]
     Active Substance: METOPROLOL
     Indication: Product used for unknown indication

REACTIONS (18)
  - Sepsis [Unknown]
  - Ascites [Recovering/Resolving]
  - Intestinal obstruction [Unknown]
  - Gastrointestinal stoma output decreased [Unknown]
  - Stoma complication [Unknown]
  - Swelling [Recovering/Resolving]
  - Weight increased [Unknown]
  - Gastrointestinal stoma output increased [Unknown]
  - Eating disorder [Unknown]
  - Product use issue [Unknown]
  - Balance disorder [Recovering/Resolving]
  - Fall [Unknown]
  - Orthostatic hypotension [Recovering/Resolving]
  - Constipation [Unknown]
  - Headache [Unknown]
  - Oedema peripheral [Unknown]
  - Abdominal distension [Recovering/Resolving]
  - Dyspnoea [Unknown]

NARRATIVE: CASE EVENT DATE: 20250301
